FAERS Safety Report 7788803-7 (Version None)
Quarter: 2011Q3

REPORT INFORMATION
  Report Type: 
  Country: None (occurrence: None)
  Receive Date: 20110930
  Receipt Date: 20110923
  Transmission Date: 20111222
  Serious: Yes (Hospitalization)
  Sender: FDA-Public Use
  Company Number: DE-ABBOTT-11P-062-0858342-00

PATIENT
  Age: 78 Year
  Sex: Male

DRUGS (3)
  1. GABAPENTIN [Concomitant]
     Indication: PRODUCT USED FOR UNKNOWN INDICATION
     Route: 048
  2. LEUPROLIDE ACETATE [Suspect]
     Indication: PROSTATE CANCER
     Route: 058
  3. AMITRIPTYLINE HCL [Concomitant]
     Indication: PRODUCT USED FOR UNKNOWN INDICATION
     Route: 048

REACTIONS (9)
  - OEDEMA PERIPHERAL [None]
  - BLOOD LACTATE DEHYDROGENASE INCREASED [None]
  - BRAIN NATRIURETIC PEPTIDE INCREASED [None]
  - ALANINE AMINOTRANSFERASE INCREASED [None]
  - PLEURAL EFFUSION [None]
  - BLOOD CREATINE PHOSPHOKINASE INCREASED [None]
  - ASPARTATE AMINOTRANSFERASE INCREASED [None]
  - SPLEEN SCAN ABNORMAL [None]
  - LIVER SCAN ABNORMAL [None]
